FAERS Safety Report 4483760-3 (Version None)
Quarter: 2004Q4

REPORT INFORMATION
  Report Type: 
  Country: None (occurrence: None)
  Receive Date: 20041025
  Receipt Date: 20041013
  Transmission Date: 20050328
  Serious: Yes (Death, Other)
  Sender: FDA-Public Use
  Company Number: FR-BRISTOL-MYERS SQUIBB COMPANY-12731212

PATIENT
  Age: 33 Year
  Sex: Male

DRUGS (1)
  1. AXEPIM INJ [Suspect]
     Indication: BRONCHIAL INFECTION
     Route: 042
     Dates: start: 19990120, end: 19990120

REACTIONS (4)
  - ANAPHYLACTIC SHOCK [None]
  - CARDIAC ARREST [None]
  - COMA [None]
  - RESPIRATORY ARREST [None]
